FAERS Safety Report 5634116-9 (Version None)
Quarter: 2008Q1

REPORT INFORMATION
  Report Type: 
  Country: None (occurrence: None)
  Receive Date: 20080131
  Receipt Date: 20070711
  Transmission Date: 20080703
  Serious: Yes (Other)
  Sender: FDA-Public Use
  Company Number: 158897USA

PATIENT
  Age: 45 Year
  Sex: Female

DRUGS (1)
  1. COPAXONE [Suspect]
     Dosage: 20 MG (20 MG,1 IN 1 D) SUBCUTANEOUS
     Route: 058
     Dates: end: 20070501

REACTIONS (6)
  - ANAPHYLACTIC REACTION [None]
  - INJECTION SITE NECROSIS [None]
  - LYMPHADENOPATHY [None]
  - THROAT TIGHTNESS [None]
  - URTICARIA [None]
  - WOUND [None]
